FAERS Safety Report 5867874-9 (Version None)
Quarter: 2008Q3

REPORT INFORMATION
  Report Type: 
  Country: None (occurrence: None)
  Receive Date: 20080902
  Receipt Date: 20080826
  Transmission Date: 20090109
  Serious: Yes (Death, Hospitalization)
  Sender: FDA-Public Use
  Company Number: US-BOEHRINGER INGELHEIM GMBH, GERMANY-2008-BP-13425RO

PATIENT
  Age: 33 Year
  Sex: Male

DRUGS (6)
  1. METHADONE HCL [Suspect]
     Indication: ABDOMINAL PAIN
     Route: 042
  2. HYDROMORPHONE HCL [Suspect]
     Indication: ABDOMINAL PAIN
     Route: 042
  3. CELIAC PLEXUS BLOCK [Suspect]
     Indication: ABDOMINAL PAIN
  4. CELIAC PLEXUS BLOCK [Suspect]
     Indication: ANALGESIC INTERVENTION SUPPORTIVE THERAPY
  5. KETAMINE HCL [Concomitant]
     Indication: PAIN
     Route: 042
  6. DANTROLENE SODIUM [Concomitant]
     Indication: MYOCLONUS
     Route: 042

REACTIONS (9)
  - CACHEXIA [None]
  - DEATH [None]
  - DRUG INEFFECTIVE [None]
  - ELECTROCARDIOGRAM QT PROLONGED [None]
  - JAUNDICE [None]
  - MYOCLONUS [None]
  - PAIN [None]
  - PYREXIA [None]
  - WOUND DRAINAGE [None]
